FAERS Safety Report 22258274 (Version 11)
Quarter: 2023Q2

REPORT INFORMATION
  Report Type: Report from Study
  Country: CN (occurrence: CN)
  Receive Date: 20230427
  Receipt Date: 20230622
  Transmission Date: 20230722
  Serious: Yes (Other)
  Sender: FDA-Public Use
  Company Number: CN-JNJFOC-20230447903

PATIENT
  Age: 69 Year
  Sex: Female

DRUGS (8)
  1. DARZALEX [Suspect]
     Active Substance: DARATUMUMAB
     Indication: Plasma cell myeloma
     Dosage: 11/JUL/2021
     Route: 065
     Dates: start: 20210711
  2. DARZALEX [Suspect]
     Active Substance: DARATUMUMAB
     Dosage: 18/JUL/2021
     Route: 065
     Dates: start: 20210718
  3. DARZALEX [Suspect]
     Active Substance: DARATUMUMAB
     Route: 065
     Dates: start: 20220809
  4. DARZALEX [Suspect]
     Active Substance: DARATUMUMAB
     Route: 065
     Dates: start: 20220820
  5. DARZALEX [Suspect]
     Active Substance: DARATUMUMAB
     Route: 065
     Dates: start: 20220827
  6. DARZALEX [Suspect]
     Active Substance: DARATUMUMAB
     Route: 065
     Dates: start: 20220726
  7. DARZALEX [Suspect]
     Active Substance: DARATUMUMAB
     Dosage: 11/JUL/2021
     Route: 065
     Dates: start: 20220711
  8. DARZALEX [Suspect]
     Active Substance: DARATUMUMAB
     Dosage: 18/JUL/2022
     Route: 065
     Dates: start: 20220718

REACTIONS (19)
  - Hypokalaemia [Recovered/Resolved]
  - Brain natriuretic peptide increased [Recovered/Resolved]
  - Hypocalcaemia [Recovered/Resolved]
  - C-reactive protein increased [Recovering/Resolving]
  - Blood bilirubin increased [Not Recovered/Not Resolved]
  - Anaemia [Not Recovered/Not Resolved]
  - Aspartate aminotransferase increased [Recovered/Resolved]
  - Alanine aminotransferase increased [Recovered/Resolved]
  - Hyponatraemia [Recovering/Resolving]
  - Platelet count decreased [Not Recovered/Not Resolved]
  - Hyperuricaemia [Recovered/Resolved]
  - Hyperglycaemia [Recovered/Resolved]
  - White blood cell count decreased [Recovered/Resolved]
  - Neutrophil count decreased [Recovered/Resolved]
  - Blood urine present [Not Recovered/Not Resolved]
  - Glucose urine present [Not Recovered/Not Resolved]
  - Hypertriglyceridaemia [Not Recovered/Not Resolved]
  - Troponin I increased [Not Recovered/Not Resolved]
  - Diarrhoea [Not Recovered/Not Resolved]

NARRATIVE: CASE EVENT DATE: 20220818
